FAERS Safety Report 7749753 (Version 2)
Quarter: 2012Q4

REPORT INFORMATION
  Report Type: 
  Country: US (occurrence: US)
  Receive Date: 20110106
  Receipt Date: 20121203
  Transmission Date: 20130627
  Serious: Yes (Hospitalization)
  Sender: FDA-Public Use
  Company Number: US-BIOGENIDEC-2011BI000282

PATIENT
  Age: 53 Year
  Sex: Female

DRUGS (1)
  1. AVONEX [Suspect]
     Indication: MULTIPLE SCLEROSIS
     Route: 030
     Dates: start: 20040101

REACTIONS (5)
  - Cerebrovascular accident [Recovered/Resolved]
  - Ankle fracture [Recovered/Resolved]
  - Multiple sclerosis relapse [Recovered/Resolved]
  - Peroneal nerve palsy [Unknown]
  - Asthenia [Not Recovered/Not Resolved]
